FAERS Safety Report 20008957 (Version 1)
Quarter: 2021Q4

REPORT INFORMATION
  Report Type: Other
  Country: US (occurrence: US)
  Receive Date: 20211028
  Receipt Date: 20211028
  Transmission Date: 20220304
  Serious: Yes (Hospitalization)
  Sender: FDA-Public Use
  Company Number: US-ROCHE-2941094

PATIENT
  Age: 67 Year
  Sex: Female

DRUGS (5)
  1. TRASTUZUMAB [Suspect]
     Active Substance: TRASTUZUMAB
     Indication: HER2 positive breast cancer
     Route: 065
  2. PACLITAXEL [Suspect]
     Active Substance: PACLITAXEL
     Indication: HER2 positive breast cancer
     Route: 065
  3. LEVETIRACETAM [Concomitant]
     Active Substance: LEVETIRACETAM
  4. DEXAMETHASONE [Concomitant]
     Active Substance: DEXAMETHASONE
  5. NICARDIPINE [Concomitant]
     Active Substance: NICARDIPINE

REACTIONS (1)
  - Posterior reversible encephalopathy syndrome [Recovered/Resolved]
